FAERS Safety Report 22131300 (Version 1)
Quarter: 2023Q1

REPORT INFORMATION
  Report Type: Other
  Country: UA (occurrence: None)
  Receive Date: 20230323
  Receipt Date: 20230323
  Transmission Date: 20230417
  Serious: Yes (Other)
  Sender: FDA-Public Use
  Company Number: UA-ROCHE-3316548

PATIENT

DRUGS (2)
  1. TOCILIZUMAB [Suspect]
     Active Substance: TOCILIZUMAB
     Indication: COVID-19
     Route: 041
  2. TOCILIZUMAB [Suspect]
     Active Substance: TOCILIZUMAB
     Route: 041

REACTIONS (2)
  - Hyperleukocytosis [Unknown]
  - Off label use [Unknown]
